FAERS Safety Report 8238750-1 (Version None)
Quarter: 2012Q1

REPORT INFORMATION
  Report Type: 
  Country: None (occurrence: None)
  Receive Date: 20120327
  Receipt Date: 20120323
  Transmission Date: 20120608
  Serious: Yes (Hospitalization)
  Sender: FDA-Public Use
  Company Number: AU-JNJFOC-20101202937

PATIENT
  Sex: Female

DRUGS (10)
  1. STELARA [Suspect]
     Route: 058
     Dates: start: 20111014
  2. STELARA [Suspect]
     Route: 058
     Dates: start: 20110722
  3. STELARA [Suspect]
     Route: 058
     Dates: start: 20110429
  4. STELARA [Suspect]
     Route: 058
     Dates: start: 20100819
  5. STELARA [Suspect]
     Route: 058
     Dates: start: 20100430
  6. STELARA [Suspect]
     Route: 058
     Dates: start: 20120328
  7. STELARA [Suspect]
     Route: 058
     Dates: start: 20101112
  8. STELARA [Suspect]
     Indication: PRODUCT USED FOR UNKNOWN INDICATION
     Route: 058
     Dates: start: 20110204
  9. STELARA [Suspect]
     Route: 058
     Dates: start: 20120109
  10. STELARA [Suspect]
     Route: 058
     Dates: start: 20100528

REACTIONS (4)
  - FATIGUE [None]
  - URINARY TRACT INFECTION [None]
  - PNEUMONIA [None]
  - WEIGHT INCREASED [None]
